FAERS Safety Report 5968462-6 (Version None)
Quarter: 2008Q4

REPORT INFORMATION
  Report Type: 
  Country: None (occurrence: None)
  Receive Date: 20081126
  Receipt Date: 20081114
  Transmission Date: 20090506
  Serious: Yes (Other)
  Sender: FDA-Public Use
  Company Number: CZ-BAXTER-2008BH012675

PATIENT

DRUGS (2)
  1. FEIBA VH IMMUNO [Suspect]
     Indication: HAEMARTHROSIS
     Dosage: DOSE UNIT:UNKNOWN
     Route: 065
  2. FEIBA VH IMMUNO [Suspect]
     Dosage: DOSE UNIT:UNKNOWN
     Route: 065

REACTIONS (1)
  - DRUG INEFFECTIVE [None]
